FAERS Safety Report 4618768-8 (Version None)
Quarter: 2005Q1

REPORT INFORMATION
  Report Type: 
  Country: None (occurrence: None)
  Receive Date: 20050323
  Receipt Date: 20050310
  Transmission Date: 20050727
  Serious: Yes (Hospitalization)
  Sender: FDA-Public Use
  Company Number: 2005043760

PATIENT
  Age: 53 Year
  Sex: Male

DRUGS (3)
  1. NARDIL [Suspect]
     Indication: DEPRESSION
     Dosage: (15 MG), ORAL
     Route: 048
  2. ALPRAZOLAM [Concomitant]
  3. ALL OTHERTHERAPEUTIC PRODUCTS (ALL OTHER THERAPEUTIC PRODUCTS0 [Concomitant]

REACTIONS (3)
  - NAUSEA [None]
  - STOMACH DISCOMFORT [None]
  - VOMITING [None]
